FAERS Safety Report 14984611 (Version 1)
Quarter: 2018Q2

REPORT INFORMATION
  Report Type: Report from Study
  Country: CA (occurrence: CA)
  Receive Date: 20180607
  Receipt Date: 20180607
  Transmission Date: 20180711
  Serious: Yes (Other)
  Sender: FDA-Public Use
  Company Number: CA-TEVA-2018-CA-899602

PATIENT
  Sex: Female

DRUGS (9)
  1. ALPHA LIPOIC ACID [Concomitant]
     Active Substance: .ALPHA.-LIPOIC ACID
  2. TURMERIC [Concomitant]
     Active Substance: HERBALS\TURMERIC
  3. VITAMIN C [Concomitant]
     Active Substance: ASCORBIC ACID
  4. GINGER. [Concomitant]
     Active Substance: GINGER
  5. MELATONIN [Concomitant]
     Active Substance: MELATONIN
  6. VITAMIN B [Concomitant]
     Active Substance: VITAMIN B
  7. VITAMIN D [Concomitant]
     Active Substance: CHOLECALCIFEROL
  8. COPAXONE [Suspect]
     Active Substance: GLATIRAMER ACETATE
     Indication: MULTIPLE SCLEROSIS
     Dosage: 20 MILLIGRAM DAILY;
     Route: 058
     Dates: start: 20180128
  9. BIOTIN [Concomitant]
     Active Substance: BIOTIN

REACTIONS (8)
  - Head discomfort [Unknown]
  - Anxiety [Unknown]
  - Blood pressure decreased [Unknown]
  - Loss of consciousness [Unknown]
  - Hypoaesthesia [Unknown]
  - Chest discomfort [Unknown]
  - Paraesthesia [Unknown]
  - Radial pulse abnormal [Unknown]
